FAERS Safety Report 4643134-9 (Version None)
Quarter: 2005Q2

REPORT INFORMATION
  Report Type: 
  Country: None (occurrence: None)
  Receive Date: 20050422
  Receipt Date: 20050217
  Transmission Date: 20051028
  Serious: Yes (Hospitalization, Other)
  Sender: FDA-Public Use
  Company Number: 2005034787

PATIENT
  Age: 72 Year
  Sex: Male
  Weight: 86.1834 kg

DRUGS (5)
  1. CELEBREX [Suspect]
     Indication: ARTHRALGIA
     Dosage: 200 MG (200 MG, 1 IN 1 D)
     Dates: start: 20030101
  2. INSULIN [Concomitant]
  3. TERAZOSIN HYDROCHLORIDE [Concomitant]
  4. GLIPIZIDE [Concomitant]
  5. METFORM HYDROCHLORIDE (METFORMIN HYDROCHLORIDE) [Concomitant]

REACTIONS (4)
  - CORONARY ARTERY OCCLUSION [None]
  - GALLBLADDER OPERATION [None]
  - KNEE ARTHROPLASTY [None]
  - WEIGHT FLUCTUATION [None]
